FAERS Safety Report 25969883 (Version 1)
Quarter: 2025Q4

REPORT INFORMATION
  Report Type: Spontaneous
  Country: US (occurrence: None)
  Receive Date: 20251028
  Receipt Date: 20251028
  Transmission Date: 20260118
  Serious: No
  Sender: UCB
  Company Number: US-UCBSA-2025039727

PATIENT
  Age: 63 Year

DRUGS (2)
  1. BIMZELX [Suspect]
     Active Substance: BIMEKIZUMAB-BKZX
     Indication: Ankylosing spondylitis
     Dosage: 160 MILLIGRAM, EV 4 WEEKS
  2. ENBREL [Concomitant]
     Active Substance: ETANERCEPT
     Indication: Product used for unknown indication
     Dosage: UNK

REACTIONS (4)
  - Injection site pain [Unknown]
  - Device issue [Unknown]
  - Device leakage [Unknown]
  - Product dose omission issue [Unknown]
